FAERS Safety Report 4964354-X (Version None)
Quarter: 2006Q2

REPORT INFORMATION
  Report Type: 
  Country: None (occurrence: None)
  Receive Date: 20060406
  Receipt Date: 20060328
  Transmission Date: 20061013
  Serious: Yes (Other)
  Sender: FDA-Public Use
  Company Number: US-JNJFOC-20060307908

PATIENT
  Sex: Female
  Weight: 65.77 kg

DRUGS (7)
  1. FENTANYL [Suspect]
     Route: 062
  2. PROVERA [Concomitant]
     Indication: HORMONE REPLACEMENT THERAPY
     Route: 048
  3. ESTROTEST [Concomitant]
     Route: 048
  4. ESTROTEST [Concomitant]
     Route: 048
  5. ESTROTEST [Concomitant]
     Indication: HORMONE REPLACEMENT THERAPY
     Route: 048
  6. LEXAPRO [Concomitant]
     Indication: DEPRESSION
     Route: 048
  7. MOBIC [Concomitant]
     Indication: ANTIINFLAMMATORY THERAPY
     Route: 048

REACTIONS (5)
  - APPLICATION SITE DERMATITIS [None]
  - CONSTIPATION [None]
  - HYPERTENSION [None]
  - PHARMACEUTICAL PRODUCT COMPLAINT [None]
  - TRANSIENT ISCHAEMIC ATTACK [None]
